FAERS Safety Report 10543304 (Version 4)
Quarter: 2017Q4

REPORT INFORMATION
  Report Type: Report from Study
  Country: US (occurrence: US)
  Receive Date: 20141027
  Receipt Date: 20171113
  Transmission Date: 20180320
  Serious: Yes (Hospitalization, Other)
  Sender: FDA-Public Use
  Company Number: US-ROCHE-1478865

PATIENT
  Age: 72 Year
  Sex: Female
  Weight: 62.9 kg

DRUGS (6)
  1. BEVACIZUMAB. [Suspect]
     Active Substance: BEVACIZUMAB
     Indication: ENDOMETRIAL CANCER
     Dosage: OVER 30-90 MIN Q 2 WEEKS?LAST DOSE PRIOR TO SAE RECEIVED ON 05/MAY/2014?MOST RECENT OF 630 MG ON 08/
     Route: 042
     Dates: start: 20160725
  2. DASATINIB. [Suspect]
     Active Substance: DASATINIB
     Indication: ENDOMETRIAL CANCER
     Dosage: LAST DOSE PRIOR TO SAE RECEIVED ON 10/MAY/2014
     Route: 048
     Dates: start: 20131029
  3. BEVACIZUMAB. [Suspect]
     Active Substance: BEVACIZUMAB
     Route: 042
     Dates: start: 20160531
  4. BEVACIZUMAB. [Suspect]
     Active Substance: BEVACIZUMAB
     Route: 042
     Dates: start: 20160502
  5. DASATINIB. [Suspect]
     Active Substance: DASATINIB
     Indication: NEOPLASM
  6. BEVACIZUMAB. [Suspect]
     Active Substance: BEVACIZUMAB
     Indication: NEOPLASM
     Route: 042
     Dates: start: 20160404

REACTIONS (5)
  - Hypertension [Unknown]
  - Proteinuria [Unknown]
  - Pancreatitis [Recovering/Resolving]
  - Rectal haemorrhage [Unknown]
  - Amylase increased [Unknown]

NARRATIVE: CASE EVENT DATE: 20140511
